FAERS Safety Report 5278372-8 (Version None)
Quarter: 2007Q1

REPORT INFORMATION
  Report Type: 
  Country: None (occurrence: None)
  Receive Date: 20070328
  Receipt Date: 20070316
  Transmission Date: 20070707
  Serious: Yes (Hospitalization)
  Sender: FDA-Public Use
  Company Number: IT-BAYER-200615621GDS

PATIENT
  Age: 77 Year
  Sex: Male
  Weight: 113 kg

DRUGS (7)
  1. SORAFENIB [Suspect]
     Indication: RENAL CELL CARCINOMA STAGE UNSPECIFIED
     Dosage: TOTAL DAILY DOSE: 400 MG
     Route: 048
     Dates: start: 20061002, end: 20061023
  2. ALLOPURINOL [Concomitant]
     Indication: GOUT
     Route: 048
  3. XATRAL [Concomitant]
     Indication: BENIGN PROSTATIC HYPERPLASIA
     Route: 048
  4. PERINDOPRIL ERBUMINE [Concomitant]
     Indication: HYPERTENSION
     Route: 048
     Dates: start: 20030101, end: 20061023
  5. LANSOX [Concomitant]
     Indication: PROPHYLAXIS
     Route: 048
     Dates: start: 20060704
  6. DEXAMETHASONE [Concomitant]
     Indication: RENAL CELL CARCINOMA STAGE UNSPECIFIED
     Route: 065
     Dates: start: 20061023
  7. MANNITOL [Concomitant]
     Indication: BRADYCARDIA
     Route: 065
     Dates: start: 20061023

REACTIONS (1)
  - SYNCOPE [None]
